FAERS Safety Report 4632438-1 (Version None)
Quarter: 2005Q2

REPORT INFORMATION
  Report Type: 
  Country: None (occurrence: None)
  Receive Date: 20050401
  Receipt Date: 20050112
  Transmission Date: 20051028
  Serious: Yes (Disabling)
  Sender: FDA-Public Use
  Company Number: 05P-163-0286462-00

PATIENT
  Age: 37 Year
  Sex: Male

DRUGS (4)
  1. DEPAKOTE [Suspect]
     Dosage: 500 MG, 1 IN 1 D, ORAL
     Route: 048
     Dates: start: 20041021
  2. LAMOTRIGINE [Suspect]
     Indication: CONVULSION
     Dosage: 300 MG, 2 IN 1 D, PER ORAL
     Route: 048
     Dates: start: 20040401, end: 20041001
  3. CLONAZEPAM [Concomitant]
  4. BUDESONIDE [Concomitant]

REACTIONS (6)
  - AMNESIA [None]
  - ANTICONVULSANT DRUG LEVEL INCREASED [None]
  - BALANCE DISORDER [None]
  - DIPLOPIA [None]
  - PRESCRIBED OVERDOSE [None]
  - VISION BLURRED [None]
